FAERS Safety Report 8020597-2 (Version None)
Quarter: 2012Q1

REPORT INFORMATION
  Report Type: 
  Country: None (occurrence: None)
  Receive Date: 20120103
  Receipt Date: 20111202
  Transmission Date: 20120608
  Serious: Yes (Hospitalization, Disabling, Other)
  Sender: FDA-Public Use
  Company Number: US-ASTRAZENECA-2011SE39015

PATIENT
  Age: 66 Year
  Sex: Male

DRUGS (12)
  1. BENAZEPRIL HYDROCHLORIDE [Concomitant]
  2. BISACODYL [Concomitant]
  3. METFORMIN HCL [Concomitant]
  4. POTASSIUM CHLORIDE [Concomitant]
  5. SIMVASTATIN [Concomitant]
  6. COUMADIN [Concomitant]
  7. METOPROLOL TARTRATE [Suspect]
     Route: 065
  8. DIGOXIN [Concomitant]
  9. CRESTOR [Suspect]
     Route: 048
  10. ZETIA [Concomitant]
  11. ISOSORBIDE MONONITRATE [Concomitant]
  12. FUROSEMIDE [Concomitant]

REACTIONS (9)
  - HEMIPLEGIA [None]
  - CEREBROVASCULAR ACCIDENT [None]
  - MUSCULOSKELETAL DISORDER [None]
  - TYPE 2 DIABETES MELLITUS [None]
  - SYNCOPE [None]
  - APHASIA [None]
  - MYOCARDIAL INFARCTION [None]
  - ATRIAL FIBRILLATION [None]
  - CLUMSINESS [None]
